FAERS Safety Report 5575361-0 (Version None)
Quarter: 2007Q4

REPORT INFORMATION
  Report Type: 
  Country: None (occurrence: None)
  Receive Date: 20071221
  Receipt Date: 20071213
  Transmission Date: 20080405
  Serious: Yes (Other)
  Sender: FDA-Public Use
  Company Number: MEDI-0006295

PATIENT
  Age: 8 Month
  Sex: Male

DRUGS (5)
  1. SYNAGIS [Suspect]
     Dosage: 125 MG, INTRAMUSCULAR; 130 MG INTRAMUSCULAR
     Route: 030
     Dates: start: 20071106, end: 20071106
  2. SYNAGIS [Suspect]
     Dosage: 125 MG, INTRAMUSCULAR; 130 MG INTRAMUSCULAR
     Route: 030
     Dates: start: 20071204
  3. SYNAGIS [Suspect]
  4. SYNAGIS [Suspect]
  5. SYNAGIS [Suspect]

REACTIONS (2)
  - PNEUMONIA [None]
  - UPPER RESPIRATORY TRACT INFECTION [None]
